FAERS Safety Report 7542464-0 (Version None)
Quarter: 2011Q2

REPORT INFORMATION
  Report Type: 
  Country: None (occurrence: None)
  Receive Date: 20110524
  Receipt Date: 20110414
  Transmission Date: 20111010
  Serious: No
  Sender: FDA-Public Use
  Company Number: 025707

PATIENT
  Sex: Female

DRUGS (2)
  1. MERCAPTOPURINE [Concomitant]
  2. CIMZIA [Suspect]
     Indication: CROHN'S DISEASE
     Dosage: SUBCUTANEOUS
     Route: 058
     Dates: start: 20101027

REACTIONS (4)
  - ALOPECIA [None]
  - INJECTION SITE PAIN [None]
  - ASTHENIA [None]
  - FATIGUE [None]
